FAERS Safety Report 18137089 (Version 1)
Quarter: 2020Q3

REPORT INFORMATION
  Report Type: Report from Study
  Country: US (occurrence: US)
  Receive Date: 20200811
  Receipt Date: 20200811
  Transmission Date: 20201103
  Serious: Yes (Hospitalization)
  Sender: FDA-Public Use
  Company Number: US-WORLDWIDE CLINICAL TRIALS-2020-US-000204

PATIENT
  Age: 61 Year
  Sex: Female
  Weight: 98.6 kg

DRUGS (8)
  1. LEVOTHYROXINE. [Concomitant]
     Active Substance: LEVOTHYROXINE
     Dosage: 125 MCG, QD
     Route: 048
     Dates: start: 20140925
  2. DCC?2618 [Suspect]
     Active Substance: RIPRETINIB
     Indication: GASTROINTESTINAL STROMAL TUMOUR
     Dosage: 150 MILLIGRAM, QD
     Route: 048
     Dates: start: 20200204, end: 20200415
  3. NABUMETONE. [Concomitant]
     Active Substance: NABUMETONE
     Dosage: 750 MG, BID
     Route: 048
     Dates: start: 20190501
  4. ONDANSETRON [Concomitant]
     Active Substance: ONDANSETRON
     Indication: NAUSEA
     Dosage: 8 MG, TID
     Route: 048
     Dates: start: 20200224
  5. ONDANSETRON [Concomitant]
     Active Substance: ONDANSETRON
     Indication: VOMITING
  6. POTASSIUM CHLORIDE. [Concomitant]
     Active Substance: POTASSIUM CHLORIDE
     Dosage: 10 MEQ, BID
     Route: 048
     Dates: start: 20200403
  7. DEMADEX [Concomitant]
     Active Substance: TORSEMIDE
     Dosage: 20 MG, PRN
     Route: 048
     Dates: start: 20190521
  8. PHENERGAN [Concomitant]
     Active Substance: PROMETHAZINE HYDROCHLORIDE
     Indication: NAUSEA
     Dosage: 25 MG, PRN
     Route: 048
     Dates: start: 20200312

REACTIONS (1)
  - Supraventricular tachycardia [Recovered/Resolved]

NARRATIVE: CASE EVENT DATE: 20200415
